FAERS Safety Report 12939952 (Version 1)
Quarter: 2016Q4

REPORT INFORMATION
  Report Type: Spontaneous
  Country: PT (occurrence: PT)
  Receive Date: 20161115
  Receipt Date: 20161115
  Transmission Date: 20170207
  Serious: Yes (Death, Other)
  Sender: FDA-Public Use
  Company Number: PT-BAYER-2016-213916

PATIENT
  Age: 61 Year
  Sex: Male

DRUGS (2)
  1. XOFIGO [Suspect]
     Active Substance: RADIUM RA-223 DICHLORIDE
  2. DOCETAXEL. [Concomitant]
     Active Substance: DOCETAXEL

REACTIONS (5)
  - White blood cell count decreased [None]
  - Platelet count decreased [None]
  - Death [Fatal]
  - Haemoglobin decreased [None]
  - Haematotoxicity [None]
